FAERS Safety Report 14589305 (Version 2)
Quarter: 2018Q1

REPORT INFORMATION
  Report Type: Report from Study
  Country: None (occurrence: DE)
  Receive Date: 20180301
  Receipt Date: 20180313
  Transmission Date: 20180509
  Serious: Yes (Hospitalization, Other)
  Sender: FDA-Public Use
  Company Number: DE-ABBVIE-18K-062-2267822-00

PATIENT
  Age: 60 Year
  Sex: Male
  Weight: 93 kg

DRUGS (5)
  1. HUMIRA [Suspect]
     Active Substance: ADALIMUMAB
     Indication: PSORIATIC ARTHROPATHY
     Route: 058
     Dates: start: 20131029
  2. RAMIPRIL. [Concomitant]
     Active Substance: RAMIPRIL
     Indication: PRODUCT USED FOR UNKNOWN INDICATION
     Dates: start: 2011
  3. AMLODIPIN [Concomitant]
     Active Substance: AMLODIPINE BESYLATE
     Indication: PRODUCT USED FOR UNKNOWN INDICATION
     Dates: start: 2010
  4. HUMIRA [Suspect]
     Active Substance: ADALIMUMAB
     Indication: PSORIATIC ARTHROPATHY
     Route: 058
     Dates: end: 20180130
  5. SIMVA [Concomitant]
     Active Substance: SIMVASTATIN
     Indication: PRODUCT USED FOR UNKNOWN INDICATION
     Dates: start: 2016

REACTIONS (29)
  - Skin swelling [Recovering/Resolving]
  - Papule [Recovering/Resolving]
  - Peripheral swelling [Recovering/Resolving]
  - Ear swelling [Recovering/Resolving]
  - Eyelid oedema [Recovering/Resolving]
  - Rash macular [Recovering/Resolving]
  - Joint warmth [Recovering/Resolving]
  - Erythema [Recovering/Resolving]
  - Periarthritis calcarea [Recovering/Resolving]
  - Skin laxity [Recovering/Resolving]
  - Facial pain [Recovering/Resolving]
  - Headache [Recovering/Resolving]
  - Procedural complication [Recovering/Resolving]
  - Pruritus [Recovering/Resolving]
  - Skin exfoliation [Recovering/Resolving]
  - Pain in extremity [Recovering/Resolving]
  - Ear pain [Recovering/Resolving]
  - Eyelid pain [Recovering/Resolving]
  - Lip pain [Recovering/Resolving]
  - Lip swelling [Recovering/Resolving]
  - Hypoaesthesia [Recovering/Resolving]
  - Borrelia infection [Recovering/Resolving]
  - Secretion discharge [Recovering/Resolving]
  - Osteoarthritis [Recovering/Resolving]
  - Extracorporeal shock wave therapy [Recovering/Resolving]
  - Arthropod bite [Recovering/Resolving]
  - Blister [Recovering/Resolving]
  - Pain of skin [Recovering/Resolving]
  - Erythema migrans [Recovered/Resolved]

NARRATIVE: CASE EVENT DATE: 20140627
